FAERS Safety Report 11334801 (Version 2)
Quarter: 2015Q3

REPORT INFORMATION
  Report Type: Spontaneous
  Country: FR (occurrence: None)
  Receive Date: 20150731
  Receipt Date: 20150901
  Transmission Date: 20151125
  Serious: Yes (Hospitalization)
  Sender: FDA-Public Use
  Company Number: 2015FE02506

PATIENT
  Age: 30 Year
  Sex: Male

DRUGS (20)
  1. VANCOMYCINE SANDOZ (VANCOMYCIN HYDROCHLORIDE) [Suspect]
     Active Substance: VANCOMYCIN HYDROCHLORIDE
     Indication: PRODUCT USED FOR UNKNOWN INDICATION
     Route: 042
     Dates: start: 20150523, end: 20150529
  2. PROPOFOL (PROPOFOL) [Suspect]
     Active Substance: PROPOFOL
     Indication: PRODUCT USED FOR UNKNOWN INDICATION
     Dosage: 100 AT 200 MG/HOUR
     Route: 042
     Dates: start: 20150519, end: 20150607
  3. CISTRACURIUM (CISATRACURIUM) [Suspect]
     Active Substance: CISATRACURIUM
     Indication: PRODUCT USED FOR UNKNOWN INDICATION
     Dosage: 10 AT 20 MG/HOUR
     Route: 042
     Dates: start: 20150519, end: 20150602
  4. PARACETAMOL (PARACETAMOL) [Suspect]
     Active Substance: ACETAMINOPHEN
     Indication: PRODUCT USED FOR UNKNOWN INDICATION
     Dosage: 1-4 G DAILY
     Dates: start: 20150519
  5. MORPHINE (MORPHINE) [Suspect]
     Active Substance: MORPHINE
     Indication: PRODUCT USED FOR UNKNOWN INDICATION
     Route: 042
     Dates: start: 20150519, end: 20150519
  6. MANNITOL MACOPHARM (MANNITOL) [Suspect]
     Active Substance: MANNITOL
     Indication: PRODUCT USED FOR UNKNOWN INDICATION
     Dosage: 150 AT 250, INTRAVENOUS
     Route: 042
     Dates: start: 20150524, end: 20150531
  7. CELOCURINE [Suspect]
     Active Substance: SUCCINYLCHOLINE CHLORIDE
     Indication: PRODUCT USED FOR UNKNOWN INDICATION
     Route: 042
     Dates: start: 20150519, end: 20150519
  8. ROCEPHINE (CEFTRIAXONE SODIUM) [Suspect]
     Active Substance: CEFTRIAXONE SODIUM
     Indication: PRODUCT USED FOR UNKNOWN INDICATION
     Dates: start: 20150523, end: 20150523
  9. BRISTOPEN (OXACILLIN SODIUM) [Suspect]
     Active Substance: OXACILLIN SODIUM
     Indication: PRODUCT USED FOR UNKNOWN INDICATION
     Dosage: 45 G TOTAL
     Dates: start: 20150524, end: 20150527
  10. THIOPENTAL ROTEXMEDICA (THIOPENTAL SODIUM) [Suspect]
     Active Substance: THIOPENTAL
     Indication: PRODUCT USED FOR UNKNOWN INDICATION
     Dosage: 4 G/24 HOURS
     Route: 042
     Dates: start: 20150519
  11. ADRENALINE /00003901/ [Suspect]
     Active Substance: EPINEPHRINE
     Indication: PRODUCT USED FOR UNKNOWN INDICATION
     Route: 042
     Dates: start: 20150524, end: 20150525
  12. GENTAMICINE PANPHARMA (GENTAMICIN SULFATE) [Suspect]
     Active Substance: GENTAMICIN SULFATE
     Indication: PRODUCT USED FOR UNKNOWN INDICATION
     Dosage: 2040 MG TOTAL
     Route: 042
     Dates: start: 20150524, end: 20150525
  13. MINIRIN [Suspect]
     Active Substance: DESMOPRESSIN ACETATE
     Indication: PRODUCT USED FOR UNKNOWN INDICATION
     Dosage: ONE QUARTER OF A VIAL 4 DAYS, THEN 1/2 VIAL FOR 2 DAYS
     Route: 042
     Dates: start: 20150521, end: 20150526
  14. NOREPINEPHRINE [Suspect]
     Active Substance: NOREPINEPHRINE\NOREPINEPHRINE BITARTRATE
     Indication: PRODUCT USED FOR UNKNOWN INDICATION
     Route: 042
     Dates: start: 20150519, end: 20150608
  15. AUGMENTIN [Suspect]
     Active Substance: AMOXICILLIN\CLAVULANATE POTASSIUM
     Indication: PRODUCT USED FOR UNKNOWN INDICATION
     Dosage: 4 G TOTAL
     Dates: start: 20150522, end: 20150523
  16. MIDAZOLAM [Suspect]
     Active Substance: MIDAZOLAM\MIDAZOLAM HYDROCHLORIDE
     Indication: PRODUCT USED FOR UNKNOWN INDICATION
     Dosage: PROGRESSION FROM 10-20-30-20--10-5 MG/HOUR
     Dates: start: 20150519, end: 20150611
  17. HYDROCORTISONE UPJOHN (HYDROCORTISONE SODIUM SUCCINATE) [Suspect]
     Active Substance: HYDROCORTISONE SODIUM SUCCINATE
     Indication: PRODUCT USED FOR UNKNOWN INDICATION
     Dosage: 100 MG AT 200 MG/24 HOURS
     Route: 042
     Dates: start: 20150519, end: 20150603
  18. DOBUTAMINE PANPHARMA (DOBUTAMINE HYDROCHLORIDE) [Suspect]
     Active Substance: DOBUTAMINE\DOBUTAMINE HYDROCHLORIDE
     Indication: PRODUCT USED FOR UNKNOWN INDICATION
     Dosage: 250 MG/20 ML
     Route: 042
     Dates: start: 20150524, end: 20150603
  19. FENTANYL RENAUDIN (FENTANYL CITRATE) [Suspect]
     Active Substance: FENTANYL
     Indication: PRODUCT USED FOR UNKNOWN INDICATION
     Dosage: 50 AT 300 MG/HOUR
     Route: 042
     Dates: start: 20150519, end: 20150611
  20. NIMOTOP [Suspect]
     Active Substance: NIMODIPINE
     Indication: PRODUCT USED FOR UNKNOWN INDICATION
     Route: 042
     Dates: start: 20150519

REACTIONS (5)
  - Rash macular [None]
  - Septic shock [None]
  - Multi-organ failure [None]
  - Drug reaction with eosinophilia and systemic symptoms [None]
  - Disease recurrence [None]

NARRATIVE: CASE EVENT DATE: 20150525
